FAERS Safety Report 8021203 (Version 8)
Quarter: 2013Q3

REPORT INFORMATION
  Report Type: Spontaneous
  Country: US (occurrence: US)
  Receive Date: 20110705
  Receipt Date: 20130812
  Transmission Date: 20140515
  Serious: Yes (Hospitalization, Other)
  Sender: FDA-Public Use
  Company Number: US-ROCHE-786663

PATIENT
  Age: 23 Year
  Sex: Male
  Weight: 83.08 kg

DRUGS (1)
  1. ACCUTANE [Suspect]
     Indication: ACNE
     Route: 065
     Dates: start: 199710, end: 20000101

REACTIONS (11)
  - Crohn^s disease [Unknown]
  - Inflammatory bowel disease [Unknown]
  - Colonic fistula [Unknown]
  - Small intestinal perforation [Unknown]
  - Intestinal obstruction [Unknown]
  - Emotional distress [Unknown]
  - Renal disorder [Unknown]
  - Injury [Unknown]
  - Clostridium difficile colitis [Unknown]
  - Ureteric obstruction [Unknown]
  - Depression [Unknown]
